FAERS Safety Report 18012346 (Version 1)
Quarter: 2020Q3

REPORT INFORMATION
  Report Type: Spontaneous
  Country: JP (occurrence: JP)
  Receive Date: 20200713
  Receipt Date: 20200713
  Transmission Date: 20201103
  Serious: Yes (Other)
  Sender: FDA-Public Use
  Company Number: JP-009507513-2006JPN002615J

PATIENT
  Age: 70 Year
  Sex: Male

DRUGS (4)
  1. BELSOMRA [Suspect]
     Active Substance: SUVOREXANT
     Indication: INSOMNIA
     Dosage: UNK
     Route: 048
     Dates: start: 20190418, end: 20200706
  2. TRAZENTA [Concomitant]
     Active Substance: LINAGLIPTIN
     Dosage: UNK
     Route: 065
  3. ZETIA [Concomitant]
     Active Substance: EZETIMIBE
     Dosage: UNK
     Route: 048
  4. GLIMEPIRIDE. [Concomitant]
     Active Substance: GLIMEPIRIDE
     Dosage: UNK
     Route: 065

REACTIONS (1)
  - Cerebral infarction [Unknown]

NARRATIVE: CASE EVENT DATE: 20200629
